FAERS Safety Report 25571833 (Version 2)
Quarter: 2025Q3

REPORT INFORMATION
  Report Type: Spontaneous
  Country: JP (occurrence: JP)
  Receive Date: 20250717
  Receipt Date: 20250828
  Transmission Date: 20251021
  Serious: Yes (Other)
  Sender: PFIZER
  Company Number: JP-PFIZER INC-202500141318

PATIENT
  Age: 64 Year
  Sex: Male

DRUGS (1)
  1. ELREXFIO [Suspect]
     Active Substance: ELRANATAMAB-BCMM
     Route: 058

REACTIONS (5)
  - Cytokine release syndrome [Recovered/Resolved]
  - Altered state of consciousness [Recovered/Resolved]
  - Cytomegalovirus infection reactivation [Recovered/Resolved]
  - Neutropenia [Recovered/Resolved]
  - Malaise [Unknown]
